FAERS Safety Report 9416335 (Version 1)
Quarter: 2013Q3

REPORT INFORMATION
  Report Type: Spontaneous
  Country: US (occurrence: None)
  Receive Date: 20130723
  Receipt Date: 20130723
  Transmission Date: 20140515
  Serious: Yes (Other)
  Sender: FDA-Public Use
  Company Number: None

PATIENT
  Age: 54 Year
  Sex: Male
  Weight: 91.17 kg

DRUGS (9)
  1. JENTADUETO [Suspect]
     Indication: TYPE 2 DIABETES MELLITUS
     Dosage: 60 TABLETS
     Route: 048
     Dates: start: 20130301, end: 20130523
  2. LIPITOR [Concomitant]
  3. TRICOR [Concomitant]
  4. METAFORMIN [Concomitant]
  5. CINNAMON BARK [Concomitant]
  6. FISH OIL [Concomitant]
  7. PROSTATE FORMULATION [Concomitant]
  8. VITAMIN D [Concomitant]
  9. PROTONIX [Concomitant]

REACTIONS (2)
  - Pancreatitis acute [None]
  - Pancreatic pseudocyst [None]
